FAERS Safety Report 5486310-8 (Version None)
Quarter: 2007Q4

REPORT INFORMATION
  Report Type: 
  Country: None (occurrence: None)
  Receive Date: 20071016
  Receipt Date: 20071011
  Transmission Date: 20080405
  Serious: Yes (Other)
  Sender: FDA-Public Use
  Company Number: PHNU2007DE03403

PATIENT
  Sex: Female
  Weight: 60 kg

DRUGS (1)
  1. AREDIA [Suspect]
     Indication: METASTASES TO BONE
     Dosage: UNK, UNK
     Route: 042
     Dates: start: 20050301

REACTIONS (6)
  - BIOPSY [None]
  - C-REACTIVE PROTEIN INCREASED [None]
  - JAW OPERATION [None]
  - LEUKOCYTOSIS [None]
  - OSTEONECROSIS [None]
  - SURGERY [None]
